FAERS Safety Report 6049570-0 (Version None)
Quarter: 2009Q1

REPORT INFORMATION
  Report Type: 
  Country: None (occurrence: None)
  Receive Date: 20090123
  Receipt Date: 20090112
  Transmission Date: 20090719
  Serious: Yes (Other)
  Sender: FDA-Public Use
  Company Number: US-PFIZER INC-2008155754

PATIENT
  Sex: Male
  Weight: 77.098 kg

DRUGS (18)
  1. VIAGRA [Suspect]
     Indication: HYPOTENSION
     Dosage: UNK
     Dates: start: 20020101
  2. VIAGRA [Suspect]
     Indication: CARDIAC DISORDER
  3. WARFARIN [Suspect]
     Dosage: UNK
  4. DIGOXIN [Concomitant]
     Dosage: UNK
  5. ALLOPURINOL [Concomitant]
     Dosage: UNK
  6. CARVEDILOL [Concomitant]
     Dosage: UNK
  7. SIMVASTATIN [Concomitant]
     Dosage: UNK
  8. ZOLPIDEM [Concomitant]
     Dosage: UNK
  9. TRAZODONE [Concomitant]
     Dosage: UNK
  10. TAMSULOSIN [Concomitant]
     Dosage: UNK
  11. FUROSEMIDE [Concomitant]
     Dosage: UNK
  12. METOPROLOL TARTRATE [Concomitant]
     Dosage: UNK
  13. ALBUTEROL [Concomitant]
     Dosage: UNK
  14. HYDROCODONE [Concomitant]
     Dosage: UNK
  15. POTASSIUM [Concomitant]
     Dosage: UNK
  16. ACETYLSALICYLIC ACID [Concomitant]
     Dosage: UNK
  17. Q10 [Concomitant]
     Dosage: UNK
  18. ALL OTHER THERAPEUTIC PRODUCTS [Concomitant]
     Dosage: UNK

REACTIONS (1)
  - BLINDNESS [None]
